FAERS Safety Report 14202639 (Version 2)
Quarter: 2018Q2

REPORT INFORMATION
  Report Type: Spontaneous
  Country: FR (occurrence: FR)
  Receive Date: 20171118
  Receipt Date: 20180508
  Transmission Date: 20180711
  Serious: Yes (Hospitalization)
  Sender: FDA-Public Use
  Company Number: FR-ROCHE-2021419

PATIENT
  Age: 38 Year
  Sex: Female

DRUGS (16)
  1. ISENTRESS [Suspect]
     Active Substance: RALTEGRAVIR POTASSIUM
     Indication: HIV INFECTION
     Route: 048
     Dates: start: 20161228
  2. ISONIAZID. [Concomitant]
     Active Substance: ISONIAZID
     Dosage: RESTARTED AT A LOWER DOSE
     Route: 065
     Dates: start: 20161207
  3. TRUVADA [Suspect]
     Active Substance: EMTRICITABINE\TENOFOVIR DISOPROXIL FUMARATE
     Indication: HIV INFECTION
     Route: 048
     Dates: start: 20161228
  4. PYRAZINAMIDE. [Concomitant]
     Active Substance: PYRAZINAMIDE
     Route: 065
     Dates: end: 20161128
  5. ETHAMBUTOL [Concomitant]
     Active Substance: ETHAMBUTOL HYDROCHLORIDE
  6. PEGASYS [Suspect]
     Active Substance: PEGINTERFERON ALFA-2A
     Route: 065
     Dates: start: 20170525
  7. DIFFU K [Concomitant]
     Active Substance: POTASSIUM CHLORIDE
  8. PRINCI-B FORT [Concomitant]
     Active Substance: CYANOCOBALAMIN\PYRIDOXINE\THIAMINE
  9. PEGASYS [Suspect]
     Active Substance: PEGINTERFERON ALFA-2A
     Indication: HEPATITIS D
     Route: 065
     Dates: start: 20170124, end: 20170211
  10. SPECIAFOLDINE [Concomitant]
     Active Substance: FOLIC ACID
  11. RIFAMPICIN [Concomitant]
     Active Substance: RIFAMPIN
  12. RIFABUTIN. [Concomitant]
     Active Substance: RIFABUTIN
  13. IZILOX [Concomitant]
     Active Substance: MOXIFLOXACIN HYDROCHLORIDE
  14. PHOSPHONEUROS [Concomitant]
     Active Substance: CALCIUM PHOSPHATE, DIBASIC, ANHYDROUS\MAGNESIUM GLYCEROPHOSPHATE\PHOSPHORIC ACID\SODIUM PHOSPHATE, DIBASIC
  15. LYRICA [Concomitant]
     Active Substance: PREGABALIN
  16. BACTRIM [Concomitant]
     Active Substance: SULFAMETHOXAZOLE\TRIMETHOPRIM
     Route: 065

REACTIONS (3)
  - Immune reconstitution inflammatory syndrome [Recovered/Resolved]
  - Off label use [Unknown]
  - Product use in unapproved indication [Unknown]

NARRATIVE: CASE EVENT DATE: 20170211
